FAERS Safety Report 9807628 (Version 1)
Quarter: 2014Q1

REPORT INFORMATION
  Report Type: Spontaneous
  Country: US (occurrence: US)
  Receive Date: 20140110
  Receipt Date: 20140110
  Transmission Date: 20141002
  Serious: Yes (Hospitalization)
  Sender: FDA-Public Use
  Company Number: US-SA-2014SA003046

PATIENT
  Age: 64 Year
  Sex: Male

DRUGS (1)
  1. LANTUS [Suspect]
     Indication: TYPE 2 DIABETES MELLITUS
     Dosage: DOSE:35 UNIT IN MORNING AND 30 U IN EVENING
     Route: 058

REACTIONS (4)
  - Cardiac disorder [Unknown]
  - Loss of consciousness [Unknown]
  - Ventricular tachycardia [Unknown]
  - Blood glucose abnormal [Unknown]
